FAERS Safety Report 10096610 (Version 2)
Quarter: 2014Q2

REPORT INFORMATION
  Report Type: Spontaneous
  Country: US (occurrence: US)
  Receive Date: 20140422
  Receipt Date: 20140530
  Transmission Date: 20141212
  Serious: Yes (Death)
  Sender: FDA-Public Use
  Company Number: US-BRISTOL-MYERS SQUIBB COMPANY-20623625

PATIENT
  Age: 86 Year
  Sex: Female

DRUGS (2)
  1. BYETTA [Suspect]
     Dates: start: 20050906, end: 20060512
  2. JANUVIA [Suspect]
     Dates: start: 20061212, end: 20120214

REACTIONS (1)
  - Pancreatic carcinoma [Fatal]
